FAERS Safety Report 15803349 (Version 1)
Quarter: 2019Q1

REPORT INFORMATION
  Report Type: Spontaneous
  Country: US (occurrence: US)
  Receive Date: 20190108
  Receipt Date: 20190108
  Transmission Date: 20190417
  Serious: No
  Sender: FDA-Public Use
  Company Number: None

PATIENT

DRUGS (2)
  1. FENTANYL FENTANYL [Suspect]
     Active Substance: FENTANYL
  2. ATROPINE ATORPINE [Suspect]
     Active Substance: ATROPINE

REACTIONS (2)
  - Product appearance confusion [None]
  - Wrong product stored [None]
